FAERS Safety Report 22518039 (Version 1)
Quarter: 2023Q2

REPORT INFORMATION
  Report Type: Other
  Country: CN (occurrence: None)
  Receive Date: 20230605
  Receipt Date: 20230605
  Transmission Date: 20230721
  Serious: Yes (Hospitalization)
  Sender: FDA-Public Use
  Company Number: CN-ROCHE-3358793

PATIENT
  Age: 36 Year
  Sex: Female

DRUGS (8)
  1. RITUXIMAB [Suspect]
     Active Substance: RITUXIMAB
     Indication: Autoimmune encephalopathy
     Route: 042
  2. RITUXIMAB [Suspect]
     Active Substance: RITUXIMAB
     Dosage: ON DAY 1
     Route: 042
  3. RITUXIMAB [Suspect]
     Active Substance: RITUXIMAB
     Dosage: ON DAY 2
     Route: 042
  4. METHYLPREDNISOLONE [Concomitant]
     Active Substance: METHYLPREDNISOLONE
  5. PREDNISONE [Concomitant]
     Active Substance: PREDNISONE
     Route: 048
  6. AZATHIOPRINE [Concomitant]
     Active Substance: AZATHIOPRINE
     Route: 048
  7. OFATUMUMAB [Concomitant]
     Active Substance: OFATUMUMAB
     Dosage: 20 MG ON DAYS 1, 7, AND 14, AND 20 MG MONTHLY
     Route: 058
  8. MYCOPHENOLATE MOFETIL [Concomitant]
     Active Substance: MYCOPHENOLATE MOFETIL
     Route: 048

REACTIONS (4)
  - Anaphylactic reaction [Unknown]
  - Bronchopulmonary aspergillosis [Unknown]
  - Hypersensitivity [Unknown]
  - Off label use [Unknown]
